FAERS Safety Report 4721110-5 (Version None)
Quarter: 2005Q3

REPORT INFORMATION
  Report Type: 
  Country: None (occurrence: None)
  Receive Date: 20050719
  Receipt Date: 20040901
  Transmission Date: 20060218
  Serious: Yes (Hospitalization, Other)
  Sender: FDA-Public Use
  Company Number: 2004231554US

PATIENT
  Age: 41 Year
  Sex: Male
  Weight: 99.8 kg

DRUGS (3)
  1. CELEBREX [Suspect]
     Indication: OEDEMA PERIPHERAL
     Dosage: QD, ORAL
     Route: 048
     Dates: start: 20040810
  2. TROMBYL (ACETYLSALICYLIC ACID, ACETYLSALICYLIC ACID) TABLET [Suspect]
     Indication: OEDEMA PERIPHERAL
     Dosage: ORAL
     Route: 048
     Dates: start: 20040810
  3. TROMBYL (ACETYLSALICYLIC ACID, ACETYLSALICYLIC ACID) TABLET [Suspect]
     Indication: OEDEMA PERIPHERAL
     Dosage: ORAL
     Route: 048
     Dates: start: 20040818

REACTIONS (1)
  - DUODENAL ULCER [None]
